FAERS Safety Report 21050258 (Version 1)
Quarter: 2022Q3

REPORT INFORMATION
  Report Type: Other
  Country: CA (occurrence: None)
  Receive Date: 20220706
  Receipt Date: 20220706
  Transmission Date: 20221027
  Serious: No
  Sender: FDA-Public Use
  Company Number: CA-ROCHE-3133055

PATIENT
  Age: 40 Year
  Sex: Female

DRUGS (7)
  1. OCREVUS [Suspect]
     Active Substance: OCRELIZUMAB
     Indication: Relapsing-remitting multiple sclerosis
     Dosage: 300 MG AT DAY 0 AND 14, THEN 600 MG EVERY 6 MONTH
     Route: 042
     Dates: start: 20200805
  2. CORTISONE [Concomitant]
     Active Substance: CORTISONE
     Dosage: UNCHANGED EXCEPT FOR INCREASE OF CORTISONE NASAL SPRAY TO 2 SPRAYS TWICE DAILY SINCE 4JUL2022 AT NIG
  3. COVID-19 VACCINE [Concomitant]
     Dosage: 1ST DOSE
     Dates: start: 20210505
  4. COVID-19 VACCINE [Concomitant]
     Dosage: 2ND DOSE
     Dates: start: 20210604
  5. COVID-19 VACCINE [Concomitant]
     Dosage: 3RD DOSE
     Dates: start: 20210928
  6. COVID-19 VACCINE [Concomitant]
     Dosage: 4TH DOSE
     Dates: start: 20211231
  7. COVID-19 VACCINE [Concomitant]
     Dosage: 5TH DOSE
     Dates: start: 20220426

REACTIONS (4)
  - Aphonia [Recovered/Resolved]
  - Sinus congestion [Not Recovered/Not Resolved]
  - Dizziness [Recovered/Resolved]
  - COVID-19 [Unknown]

NARRATIVE: CASE EVENT DATE: 20220625
